FAERS Safety Report 25759186 (Version 1)
Quarter: 2025Q3

REPORT INFORMATION
  Report Type: Report from Study
  Country: CL (occurrence: CL)
  Receive Date: 20250904
  Receipt Date: 20250904
  Transmission Date: 20251020
  Serious: Yes (Hospitalization)
  Sender: JOHNSON AND JOHNSON
  Company Number: CL-JNJFOC-20250816081

PATIENT
  Age: 82 Year
  Sex: Female

DRUGS (1)
  1. SIMPONI [Suspect]
     Active Substance: GOLIMUMAB
     Indication: Rheumatoid arthritis
     Route: 058
     Dates: start: 20240522

REACTIONS (3)
  - Respiratory syncytial virus infection [Not Recovered/Not Resolved]
  - Cardiac disorder [Unknown]
  - Pain [Unknown]

NARRATIVE: CASE EVENT DATE: 20250801
